FAERS Safety Report 6237646-4 (Version None)
Quarter: 2009Q2

REPORT INFORMATION
  Report Type: 
  Country: None (occurrence: None)
  Receive Date: 20090619
  Receipt Date: 20090610
  Transmission Date: 20091009
  Serious: Yes (Hospitalization, Disabling, Other)
  Sender: FDA-Public Use
  Company Number: US-MERCK-0902USA01599

PATIENT
  Age: 39 Year
  Sex: Female

DRUGS (3)
  1. FOSAMAX [Suspect]
     Indication: PREMATURE MENOPAUSE
     Route: 048
     Dates: start: 20050501, end: 20070801
  2. FOSAMAX [Suspect]
     Indication: OSTEOPOROSIS PROPHYLAXIS
     Route: 048
     Dates: start: 20050501, end: 20070801
  3. FOSAMAX PLUS D [Concomitant]
     Route: 065

REACTIONS (6)
  - ANXIETY [None]
  - ARTHROPATHY [None]
  - DEPRESSION [None]
  - JAW DISORDER [None]
  - OSTEOMYELITIS [None]
  - OSTEONECROSIS [None]
